FAERS Safety Report 7805385-1 (Version None)
Quarter: 2011Q4

REPORT INFORMATION
  Report Type: 
  Country: None (occurrence: None)
  Receive Date: 20111010
  Receipt Date: 20110929
  Transmission Date: 20120403
  Serious: Yes (Hospitalization)
  Sender: FDA-Public Use
  Company Number: IT-BAXTER-2011BH027093

PATIENT
  Sex: Male

DRUGS (1)
  1. EXTRANEAL [Suspect]
     Indication: PERITONEAL DIALYSIS
     Route: 033

REACTIONS (9)
  - RENAL FAILURE CHRONIC [None]
  - HYPERTENSION [None]
  - DECREASED APPETITE [None]
  - ENCEPHALOPATHY [None]
  - PYREXIA [None]
  - MYOCLONUS [None]
  - ANAEMIA [None]
  - DIABETES MELLITUS [None]
  - INFECTIOUS PERITONITIS [None]
